FAERS Safety Report 4967181-2 (Version None)
Quarter: 2006Q2

REPORT INFORMATION
  Report Type: 
  Country: None (occurrence: None)
  Receive Date: 20060404
  Receipt Date: 20060327
  Transmission Date: 20061013
  Serious: Yes (Death)
  Sender: FDA-Public Use
  Company Number: 222835

PATIENT
  Age: 72 Year
  Sex: Female
  Weight: 70 kg

DRUGS (4)
  1. TNKASE [Suspect]
     Indication: CEREBROVASCULAR ACCIDENT
     Dosage: SEE IMAGE
     Dates: start: 20060302
  2. TNKASE [Suspect]
     Indication: CEREBROVASCULAR ACCIDENT
     Dosage: SEE IMAGE
     Dates: start: 20060302
  3. ACTIVASE [Suspect]
     Indication: CEREBROVASCULAR ACCIDENT
     Dosage: SEE IMAGE
     Dates: start: 20060302
  4. ACTIVASE [Suspect]
     Indication: CEREBROVASCULAR ACCIDENT
     Dosage: SEE IMAGE
     Dates: start: 20060302

REACTIONS (3)
  - CEREBRAL HAEMORRHAGE [None]
  - OVERDOSE [None]
  - WRONG DRUG ADMINISTERED [None]
